FAERS Safety Report 9064368 (Version 1)
Quarter: 2013Q1

REPORT INFORMATION
  Report Type: Report from Study
  Country: RU (occurrence: RU)
  Receive Date: 20130213
  Receipt Date: 20130213
  Transmission Date: 20140127
  Serious: Yes (Hospitalization)
  Sender: FDA-Public Use
  Company Number: RU-AMGEN-UK318573

PATIENT
  Age: 77 Year
  Sex: Female

DRUGS (1)
  1. DARBEPOETIN ALFA [Suspect]
     Indication: CARDIAC FAILURE
     Dosage: .65 ML, QMO
     Route: 058
     Dates: start: 20071023

REACTIONS (2)
  - Thrombophlebitis [Recovered/Resolved with Sequelae]
  - Cholecystitis [Recovered/Resolved with Sequelae]
